FAERS Safety Report 16075586 (Version 1)
Quarter: 2019Q1

REPORT INFORMATION
  Report Type: Spontaneous
  Country: CH (occurrence: CH)
  Receive Date: 20190315
  Receipt Date: 20190315
  Transmission Date: 20190418
  Serious: Yes (Death, Hospitalization, Other)
  Sender: FDA-Public Use
  Company Number: CH-ASTELLAS-2008000184

PATIENT
  Age: 53 Year
  Sex: Male

DRUGS (6)
  1. CISPLATIN. [Concomitant]
     Active Substance: CISPLATIN
     Indication: PRODUCT USED FOR UNKNOWN INDICATION
     Dosage: UNK, UNKNOWN FREQ.
     Route: 065
  2. FRAGMIN [Concomitant]
     Active Substance: DALTEPARIN SODIUM
     Indication: DEEP VEIN THROMBOSIS
     Dosage: UNK, UNKNOWN FREQ (DOSE: 15000 IE/D).
     Route: 058
     Dates: start: 20071120, end: 20071218
  3. VINORELBINE [Concomitant]
     Active Substance: VINORELBINE\VINORELBINE TARTRATE
     Indication: PRODUCT USED FOR UNKNOWN INDICATION
     Dosage: UNK, UNKNOWN FREQ.
     Route: 065
  4. TRYPSIN [Concomitant]
     Active Substance: TRYPSIN
     Indication: URINARY BLADDER SUSPENSION
     Dosage: UNK, UNKNOWN FREQ.
     Route: 065
     Dates: start: 20071120, end: 20071218
  5. MARCOUMAR [Concomitant]
     Active Substance: PHENPROCOUMON
     Indication: DEEP VEIN THROMBOSIS
     Dosage: UNK, UNKNOWN FREQ.
     Route: 048
     Dates: start: 20070718, end: 20071206
  6. ERLOTINIB [Suspect]
     Active Substance: ERLOTINIB
     Indication: NON-SMALL CELL LUNG CANCER
     Route: 048
     Dates: start: 20071120, end: 20071210

REACTIONS (12)
  - General physical health deterioration [Fatal]
  - Acute kidney injury [Fatal]
  - Folliculitis [Fatal]
  - Gait inability [Unknown]
  - Asthenia [Fatal]
  - Venous thrombosis limb [Unknown]
  - Thrombotic microangiopathy [Fatal]
  - Disseminated intravascular coagulation [Fatal]
  - Malignant neoplasm progression [Unknown]
  - Hepatitis [Fatal]
  - Renal failure [Unknown]
  - Decreased appetite [Unknown]

NARRATIVE: CASE EVENT DATE: 20071129
